FAERS Safety Report 12647869 (Version 1)
Quarter: 2016Q3

REPORT INFORMATION
  Report Type: Spontaneous
  Country: JP (occurrence: JP)
  Receive Date: 20160812
  Receipt Date: 20160812
  Transmission Date: 20161109
  Serious: Yes (Other)
  Sender: FDA-Public Use
  Company Number: JP-PFIZER INC-2016374252

PATIENT
  Age: 85 Year
  Sex: Male

DRUGS (2)
  1. LYRICA [Suspect]
     Active Substance: PREGABALIN
     Indication: PAIN
     Dosage: 25 MG, 2X/DAY
     Route: 048
     Dates: start: 201409
  2. LYRICA [Suspect]
     Active Substance: PREGABALIN
     Indication: DISCOMFORT

REACTIONS (2)
  - Gait disturbance [Unknown]
  - Cataract [Unknown]
